FAERS Safety Report 4482143-X (Version None)
Quarter: 2004Q4

REPORT INFORMATION
  Report Type: 
  Country: None (occurrence: None)
  Receive Date: 20041020
  Receipt Date: 20041008
  Transmission Date: 20050328
  Serious: Yes (Hospitalization)
  Sender: FDA-Public Use
  Company Number: RS004761-F

PATIENT
  Age: 80 Year
  Sex: Female

DRUGS (8)
  1. RABEPRAZOLE SODIUM [Suspect]
     Dosage: 10 MG, 1 IN 1 D, ORAL
     Route: 048
  2. FENOFIBRATE [Suspect]
     Dosage: ORAL
     Route: 048
     Dates: end: 20040812
  3. IMOVANE (ZOPICLONE) [Suspect]
     Dosage: 7.5 MG, ORAL
     Route: 048
  4. SERC (BETHAHISTINE HYDROCHLORIDE) [Suspect]
     Dosage: 24 MG, ORAL
     Route: 048
     Dates: end: 20040812
  5. HEPANEPHROL (HEPANEPHROL) [Concomitant]
     Dosage: ORAL
     Route: 048
     Dates: end: 20040812
  6. TANAKAN (GINKO TREE LEAVES EXTRACT) [Suspect]
     Dosage: 80 MG, ORAL
     Route: 048
     Dates: end: 20040812
  7. TOPAAL (TOPAAL) [Concomitant]
  8. ACETAMINOPHEN [Concomitant]

REACTIONS (4)
  - HALLUCINATION, VISUAL [None]
  - HEADACHE [None]
  - TEMPORAL LOBE EPILEPSY [None]
  - VISUAL DISTURBANCE [None]
